FAERS Safety Report 14481830 (Version 3)
Quarter: 2018Q1

REPORT INFORMATION
  Report Type: Spontaneous
  Country: US (occurrence: US)
  Receive Date: 20180202
  Receipt Date: 20180222
  Transmission Date: 20180509
  Serious: Yes (Other)
  Sender: FDA-Public Use
  Company Number: US-PFIZER INC-2018005511

PATIENT
  Age: 57 Year
  Sex: Female
  Weight: 78.5 kg

DRUGS (2)
  1. ENBREL [Suspect]
     Active Substance: ETANERCEPT
     Indication: RHEUMATOID ARTHRITIS
     Dosage: 50 MG, QWK
     Route: 058
     Dates: start: 20150708
  2. MEDROL [Suspect]
     Active Substance: METHYLPREDNISOLONE
     Indication: RHEUMATOID ARTHRITIS
     Dosage: UNK UNK, 2X/DAY
     Route: 065
     Dates: start: 20140331

REACTIONS (7)
  - Urinary tract infection [Unknown]
  - Immunosuppression [Unknown]
  - Nasopharyngitis [Recovered/Resolved]
  - Purpura [Unknown]
  - Ecchymosis [Unknown]
  - Infection [Unknown]
  - Injection site bruising [Unknown]

NARRATIVE: CASE EVENT DATE: 20180102
